FAERS Safety Report 6342914-1 (Version None)
Quarter: 2009Q3

REPORT INFORMATION
  Report Type: 
  Country: None (occurrence: None)
  Receive Date: 20090908
  Receipt Date: 20090831
  Transmission Date: 20100115
  Serious: Yes (Other)
  Sender: FDA-Public Use
  Company Number: GB-ROCHE-653568

PATIENT
  Age: 4 Year
  Sex: Male

DRUGS (9)
  1. DIAZEPAM [Suspect]
     Indication: DYSTONIA
     Dosage: CO-INDICATION: OCULOGYRIC CRISIS
     Route: 065
  2. DIPHENHYDRAMINE HCL [Suspect]
     Indication: DYSTONIA
     Dosage: CO-INDICATION: OCULOGYRIC CRISIS
     Route: 065
  3. DIPHENHYDRAMINE HCL [Suspect]
     Route: 065
  4. VALPROATE SODIUM [Suspect]
     Indication: DYSTONIA
     Dosage: CO-INDICATION: OCULOGYRIC CRISIS
     Route: 065
  5. VALPROATE SODIUM [Suspect]
     Route: 065
  6. METHYLPREDNISOLONE [Suspect]
     Indication: DYSTONIA
     Dosage: CO-INDICATION: OCULOGYRIC CRISIS
     Route: 065
  7. CARBAMAZEPINE [Suspect]
     Route: 065
  8. CLOBAZAM [Suspect]
     Route: 065
  9. HALOPERIDOL [Suspect]
     Route: 065

REACTIONS (3)
  - DYSKINESIA [None]
  - DYSTONIA [None]
  - OCULOGYRIC CRISIS [None]
